FAERS Safety Report 6236547-5 (Version None)
Quarter: 2009Q2

REPORT INFORMATION
  Report Type: 
  Country: None (occurrence: None)
  Receive Date: 20090619
  Receipt Date: 20090612
  Transmission Date: 20091009
  Serious: Yes (Hospitalization)
  Sender: FDA-Public Use
  Company Number: B0579056A

PATIENT
  Sex: Male

DRUGS (10)
  1. LAMICTAL [Suspect]
     Indication: EPILEPSY
     Dosage: 50MG TWICE PER DAY
     Route: 048
     Dates: start: 20090404, end: 20090609
  2. TEGRETOL [Concomitant]
     Route: 048
  3. UNKNOWN DRUG [Concomitant]
     Route: 048
  4. MUCOSTA [Concomitant]
     Route: 048
  5. MAGNESIUM OXIDE [Concomitant]
     Route: 048
  6. LIMAPROST [Concomitant]
     Route: 048
  7. UNKNOWN DRUG [Concomitant]
     Route: 048
  8. ASPIRIN [Concomitant]
     Route: 048
  9. MOBIC [Concomitant]
     Route: 048
  10. ALOSENN [Concomitant]
     Route: 048

REACTIONS (1)
  - PNEUMONIA ASPIRATION [None]
